FAERS Safety Report 9335952 (Version 1)
Quarter: 2013Q2

REPORT INFORMATION
  Report Type: Spontaneous
  Country: US (occurrence: US)
  Receive Date: 20130606
  Receipt Date: 20130606
  Transmission Date: 20140414
  Serious: No
  Sender: FDA-Public Use
  Company Number: US-AMGEN-USASP2013034464

PATIENT
  Age: 85 Year
  Sex: Female

DRUGS (15)
  1. PROLIA [Suspect]
     Indication: OSTEOPOROSIS POSTMENOPAUSAL
     Dosage: 60 MG, Q6MO
     Route: 030
  2. DIOVAN [Concomitant]
  3. EXELON                             /01383201/ [Concomitant]
     Dosage: 9.5 UNK, UNK
  4. FERROUS SULFATE [Concomitant]
  5. ISOSORBIDE MONONITRATE [Concomitant]
  6. JANUVIA [Concomitant]
  7. KLOR-CON [Concomitant]
  8. NAMENDA [Concomitant]
  9. OMEPRAZOLE [Concomitant]
     Dosage: 40 UNK, UNK
  10. SERTRALINE [Concomitant]
  11. RISPERDAL [Concomitant]
  12. LUMIGAN [Concomitant]
  13. VITAMIN D                          /00107901/ [Concomitant]
     Dosage: 400 UNK, UNK
  14. WARFARIN [Concomitant]
  15. ACETAMINOPHEN [Concomitant]

REACTIONS (1)
  - Incorrect route of drug administration [Unknown]
